FAERS Safety Report 20048169 (Version 2)
Quarter: 2021Q4

REPORT INFORMATION
  Report Type: Spontaneous
  Country: US (occurrence: US)
  Receive Date: 20211109
  Receipt Date: 20211217
  Transmission Date: 20220303
  Serious: No
  Sender: FDA-Public Use
  Company Number: US-ALLERGAN-2120340US

PATIENT
  Age: 68 Year
  Sex: Female

DRUGS (7)
  1. PREDNISOLONE ACETATE [Suspect]
     Active Substance: PREDNISOLONE ACETATE
     Indication: Postoperative care
     Dosage: UNK UNK, TID
     Route: 047
     Dates: start: 202105, end: 20210524
  2. PREDNISOLONE ACETATE [Suspect]
     Active Substance: PREDNISOLONE ACETATE
     Dosage: UNK UNK, QID
     Route: 047
     Dates: start: 202105, end: 20210524
  3. POLYTRIM [Suspect]
     Active Substance: POLYMYXIN B SULFATE\TRIMETHOPRIM SULFATE
     Indication: Postoperative care
     Dosage: UNK
     Route: 047
  4. MODERNA COVID-19 VACCINE [Concomitant]
     Active Substance: ELASOMERAN
     Dosage: UNK, SINGLE
     Dates: start: 202102, end: 202102
  5. MODERNA COVID-19 VACCINE [Concomitant]
     Active Substance: ELASOMERAN
     Dosage: UNK, SINGLE
     Dates: start: 202101, end: 202101
  6. ^Ilevo^ eye drops [Concomitant]
  7. POLYMYXIN [Concomitant]
     Active Substance: POLYMYXIN

REACTIONS (6)
  - Dyspnoea [Unknown]
  - Lung disorder [Unknown]
  - Drug hypersensitivity [Unknown]
  - Eye discharge [Unknown]
  - Throat irritation [Unknown]
  - Upper-airway cough syndrome [Unknown]

NARRATIVE: CASE EVENT DATE: 20210501
